FAERS Safety Report 19067393 (Version 1)
Quarter: 2021Q1

REPORT INFORMATION
  Report Type: Report from Study
  Country: CA (occurrence: CA)
  Receive Date: 20210329
  Receipt Date: 20210329
  Transmission Date: 20210420
  Serious: Yes (Other)
  Sender: FDA-Public Use
  Company Number: CA-JNJFOC-20210347226

PATIENT
  Age: 15 Year
  Sex: Male
  Weight: 79.7 kg

DRUGS (1)
  1. REMICADE [Suspect]
     Active Substance: INFLIXIMAB
     Indication: COLITIS ULCERATIVE
     Dosage: THE PATIENT RECEIVED 19TH INFLIXIMAB INFUSION FOR DOSE OF 550 MG ON 23?MAR?2021
     Route: 042
     Dates: start: 20181212

REACTIONS (3)
  - General physical health deterioration [Unknown]
  - Haematochezia [Unknown]
  - Frequent bowel movements [Unknown]

NARRATIVE: CASE EVENT DATE: 20210322
